FAERS Safety Report 9962678 (Version 2)
Quarter: 2014Q1

REPORT INFORMATION
  Report Type: Report from Study
  Country: US (occurrence: US)
  Receive Date: 20140305
  Receipt Date: 20140305
  Transmission Date: 20141002
  Serious: No
  Sender: FDA-Public Use
  Company Number: US-ABBVIE-13P-163-1099030-00

PATIENT
  Age: 44 Year
  Sex: Female

DRUGS (4)
  1. HUMIRA [Suspect]
     Indication: CROHN^S DISEASE
     Dates: start: 20130430, end: 20130621
  2. ZYRTEC DUO [Concomitant]
     Indication: HYPERSENSITIVITY
     Route: 048
  3. TYLENOL PM [Concomitant]
     Indication: INSOMNIA
     Route: 048
  4. XANAX [Concomitant]
     Indication: INSOMNIA
     Route: 048

REACTIONS (4)
  - Injection site erythema [Recovering/Resolving]
  - Injection site pruritus [Not Recovered/Not Resolved]
  - Rash pruritic [Not Recovered/Not Resolved]
  - Injection site erythema [Not Recovered/Not Resolved]
